FAERS Safety Report 10146849 (Version 4)
Quarter: 2014Q2

REPORT INFORMATION
  Report Type: Spontaneous
  Country: GB (occurrence: None)
  Receive Date: 20140429
  Receipt Date: 20140520
  Transmission Date: 20141212
  Serious: Yes (Death, Hospitalization, Other)
  Sender: FDA-Public Use
  Company Number: AUR-APL-2014-05013

PATIENT
  Age: 42 Year
  Sex: Female
  Weight: 64 kg

DRUGS (6)
  1. FLUCONAZOLE [Suspect]
     Indication: ORAL CANDIDIASIS
     Dosage: 50 MG (50 MG, 1 IN 1 D), ORAL
     Route: 048
     Dates: start: 20140212, end: 20140213
  2. DOMPERIDONE [Suspect]
     Indication: ANTIEMETIC SUPPORTIVE CARE
     Dosage: 30 MG (10 MG, 3 IN 1 D), ORAL
     Route: 048
  3. ABRAXANE [Suspect]
     Indication: BREAST CANCER
     Route: 042
     Dates: start: 20140207, end: 20140207
  4. PALONOSETRON [Suspect]
     Indication: ANTIEMETIC SUPPORTIVE CARE
     Dosage: 250 MG (240 MG, 1 IN 1 D), INTRAVENOUS BOLUS
     Route: 040
     Dates: start: 20140207
  5. PEGFILGRASTIM [Suspect]
     Indication: PRODUCT USED FOR UNKNOWN INDICATION
     Dosage: 6 MG (6 MG, 1 IN 1 D), SUBCUTANEOUS
     Route: 058
     Dates: start: 20140208
  6. SODIUM CHLORIDE [Suspect]
     Indication: MEDICATION DILUTION
     Route: 041
     Dates: start: 20140207, end: 20140207

REACTIONS (9)
  - Mucosal inflammation [None]
  - Pain in extremity [None]
  - Oropharyngeal pain [None]
  - Aphagia [None]
  - Fluid intake reduced [None]
  - Oral candidiasis [None]
  - Oral pain [None]
  - Renal failure [None]
  - Hypophagia [None]
